FAERS Safety Report 18812283 (Version 2)
Quarter: 2021Q4

REPORT INFORMATION
  Report Type: Spontaneous
  Country: FR (occurrence: FR)
  Receive Date: 20210129
  Receipt Date: 20211021
  Transmission Date: 20220303
  Serious: Yes (Hospitalization, Other)
  Sender: FDA-Public Use
  Company Number: FR-AFSSAPS-SE20210051

PATIENT
  Age: 78 Year
  Sex: Male
  Weight: 64 kg

DRUGS (3)
  1. AMIODARONE [Suspect]
     Active Substance: AMIODARONE
     Indication: Atrial fibrillation
     Dosage: 200 MILLIGRAM, ONCE A DAY
     Route: 048
     Dates: start: 20200514
  2. BISOPROLOL [Suspect]
     Active Substance: BISOPROLOL
     Indication: Cardiac failure
     Dosage: UNK
     Route: 048
     Dates: start: 2017
  3. PRAVASTATIN [Suspect]
     Active Substance: PRAVASTATIN
     Indication: Dyslipidaemia
     Dosage: 20 MILLIGRAM, ONCE A DAY
     Route: 048
     Dates: start: 2015

REACTIONS (1)
  - Interstitial lung disease [Recovering/Resolving]

NARRATIVE: CASE EVENT DATE: 20201101
